FAERS Safety Report 4987044-6 (Version None)
Quarter: 2006Q2

REPORT INFORMATION
  Report Type: 
  Country: None (occurrence: None)
  Receive Date: 20060501
  Receipt Date: 20060315
  Transmission Date: 20061013
  Serious: Yes (Death)
  Sender: FDA-Public Use
  Company Number: US-BRISTOL-MYERS SQUIBB COMPANY-13316922

PATIENT
  Age: 69 Year
  Sex: Female

DRUGS (1)
  1. MEGACE [Suspect]

REACTIONS (2)
  - HEPATIC NEOPLASM MALIGNANT [None]
  - SEPSIS [None]
